FAERS Safety Report 14532189 (Version 5)
Quarter: 2018Q4

REPORT INFORMATION
  Report Type: Spontaneous
  Country: US (occurrence: US)
  Receive Date: 20180214
  Receipt Date: 20181113
  Transmission Date: 20190204
  Serious: Yes (Death, Hospitalization)
  Sender: FDA-Public Use
  Company Number: US-ACTELION-A-US2018-167361

PATIENT
  Age: 8 Year
  Sex: Female

DRUGS (10)
  1. FLUTICASONE. [Concomitant]
     Active Substance: FLUTICASONE
  2. BACTRIM DS [Concomitant]
     Active Substance: SULFAMETHOXAZOLE\TRIMETHOPRIM
  3. LEUKINE [Concomitant]
     Active Substance: SARGRAMOSTIM
  4. TYLENOL [Concomitant]
     Active Substance: ACETAMINOPHEN
  5. NEULASTA [Concomitant]
     Active Substance: PEGFILGRASTIM
  6. TRACLEER [Suspect]
     Active Substance: BOSENTAN
     Indication: PULMONARY ARTERIAL HYPERTENSION
     Dosage: 31.25 MG, QD
     Route: 048
     Dates: start: 20140701, end: 20180316
  7. TRACLEER [Suspect]
     Active Substance: BOSENTAN
     Dosage: 32 MG, QD
     Route: 048
     Dates: start: 20180317
  8. FLOVENT HFA [Concomitant]
     Active Substance: FLUTICASONE PROPIONATE
  9. SILDENAFIL. [Concomitant]
     Active Substance: SILDENAFIL
  10. ALBUTEROL. [Concomitant]
     Active Substance: ALBUTEROL

REACTIONS (3)
  - Death [Fatal]
  - Pain [Unknown]
  - Pain in extremity [Unknown]

NARRATIVE: CASE EVENT DATE: 20180203
